FAERS Safety Report 12313168 (Version 4)
Quarter: 2016Q2

REPORT INFORMATION
  Report Type: Report from Study
  Country: ES (occurrence: ES)
  Receive Date: 20160428
  Receipt Date: 20160620
  Transmission Date: 20160815
  Serious: Yes (Death, Life-Threatening, Hospitalization, Other)
  Sender: FDA-Public Use
  Company Number: ES-CELGENEUS-ESP-2015084093

PATIENT
  Age: 61 Year
  Sex: Male
  Weight: 75 kg

DRUGS (2)
  1. POMALIDOMIDE [Suspect]
     Active Substance: POMALIDOMIDE
     Indication: PLASMA CELL MYELOMA
     Route: 048
     Dates: start: 20150616, end: 20150706
  2. DEXAMETHASONE. [Suspect]
     Active Substance: DEXAMETHASONE
     Indication: PLASMA CELL MYELOMA
     Route: 065
     Dates: start: 20150616, end: 20150706

REACTIONS (3)
  - Plasmacytoma [Unknown]
  - Plasma cell myeloma [Fatal]
  - Pneumonia pneumococcal [Recovered/Resolved]

NARRATIVE: CASE EVENT DATE: 20150630
